FAERS Safety Report 12195601 (Version 1)
Quarter: 2016Q1

REPORT INFORMATION
  Report Type: Spontaneous
  Country: JP (occurrence: JP)
  Receive Date: 20160321
  Receipt Date: 20160321
  Transmission Date: 20160526
  Serious: Yes (Death)
  Sender: FDA-Public Use
  Company Number: JP-UCBSA-2016005102

PATIENT
  Age: 14 Month
  Sex: Male

DRUGS (13)
  1. CYCLOSPORINE. [Concomitant]
     Active Substance: CYCLOSPORINE
     Indication: GRAFT VERSUS HOST DISEASE
     Dosage: UNKNOWN DOSE
  2. TACROLIMUS. [Concomitant]
     Active Substance: TACROLIMUS
     Indication: CYTOMEGALOVIRUS ENTERITIS
  3. METHYLPREDNISOLONE. [Concomitant]
     Active Substance: METHYLPREDNISOLONE
     Indication: GRAFT VERSUS HOST DISEASE
     Dosage: UNKNOWN DOSE
  4. TACROLIMUS. [Concomitant]
     Active Substance: TACROLIMUS
     Indication: THROMBOTIC MICROANGIOPATHY
  5. GANCICLOVIR. [Concomitant]
     Active Substance: GANCICLOVIR
     Indication: CYTOMEGALOVIRUS ENTERITIS
  6. METHYLPREDNISOLONE. [Concomitant]
     Active Substance: METHYLPREDNISOLONE
     Indication: THROMBOTIC MICROANGIOPATHY
  7. KEPPRA [Suspect]
     Active Substance: LEVETIRACETAM
     Indication: EPILEPSY
     Dosage: UNKNOWN DOSE
  8. METHOTREXATE [Concomitant]
     Active Substance: METHOTREXATE
     Indication: GRAFT VERSUS HOST DISEASE
     Dosage: UNKNOWN DOSE
  9. GANCICLOVIR. [Concomitant]
     Active Substance: GANCICLOVIR
     Indication: GRAFT VERSUS HOST DISEASE
     Dosage: UNKNOWN DOSE
  10. GANCICLOVIR. [Concomitant]
     Active Substance: GANCICLOVIR
     Indication: THROMBOTIC MICROANGIOPATHY
  11. METHYLPREDNISOLONE. [Concomitant]
     Active Substance: METHYLPREDNISOLONE
     Indication: CYTOMEGALOVIRUS ENTERITIS
  12. TACROLIMUS. [Concomitant]
     Active Substance: TACROLIMUS
     Indication: GRAFT VERSUS HOST DISEASE
     Dosage: UNKNOWN DOSE
  13. VALPROIC ACID. [Concomitant]
     Active Substance: VALPROIC ACID
     Indication: EPILEPSY
     Dosage: UNKNOWN DOSE

REACTIONS (2)
  - Juvenile chronic myelomonocytic leukaemia [Fatal]
  - Developmental delay [Unknown]
